FAERS Safety Report 8503215-6 (Version None)
Quarter: 2012Q3

REPORT INFORMATION
  Report Type: 
  Country: None (occurrence: None)
  Receive Date: 20120702
  Receipt Date: 20111102
  Transmission Date: 20120928
  Serious: Yes (Death, Hospitalization, Other)
  Sender: FDA-Public Use
  Company Number: GB-022504

PATIENT
  Age: 71 Year
  Sex: Female

DRUGS (2)
  1. CHLORAMBUCIL (CHLORAMBUCIL) [Suspect]
     Indication: CHRONIC LYMPHOCYTIC LEUKAEMIA
     Dosage: 10 MG/M2 (10 MG/M2, 1 IN 1 DAYS), ORAL
     Route: 048
     Dates: start: 20100113
  2. OFATUMUMAB (OFATUMUMAB) INJECTION [Suspect]
     Indication: CHRONIC LYMPHOCYTIC LEUKAEMIA
     Dates: start: 20100113

REACTIONS (10)
  - WHITE BLOOD CELL COUNT INCREASED [None]
  - MALAISE [None]
  - PLATELET COUNT DECREASED [None]
  - NEOPLASM PROGRESSION [None]
  - PROTHROMBIN TIME PROLONGED [None]
  - CHRONIC LYMPHOCYTIC LEUKAEMIA [None]
  - HAEMOLYTIC ANAEMIA [None]
  - INTERNATIONAL NORMALISED RATIO INCREASED [None]
  - CARDIO-RESPIRATORY ARREST [None]
  - LYMPHOCYTE COUNT INCREASED [None]
